FAERS Safety Report 9385620 (Version 2)
Quarter: 2013Q3

REPORT INFORMATION
  Report Type: Report from Study
  Country: JP (occurrence: JP)
  Receive Date: 20130705
  Receipt Date: 20130905
  Transmission Date: 20140515
  Serious: Yes (Hospitalization)
  Sender: FDA-Public Use
  Company Number: JP-VIIV HEALTHCARE LIMITED-B0346850A

PATIENT
  Age: 35 Year
  Sex: Female

DRUGS (23)
  1. EPIVIR [Suspect]
     Indication: HIV INFECTION
     Dosage: 150MG TWICE PER DAY
     Route: 048
     Dates: start: 19990318, end: 20020423
  2. EPIVIR [Suspect]
     Indication: HIV INFECTION
     Dosage: 150MG TWICE PER DAY
     Route: 048
     Dates: start: 20021208, end: 20050315
  3. RETROVIR [Suspect]
     Indication: HIV INFECTION
     Route: 048
     Dates: start: 20000222, end: 20020423
  4. ZIAGEN [Suspect]
     Indication: HIV INFECTION
     Route: 048
     Dates: start: 20021208, end: 20040331
  5. ZIAGEN [Suspect]
     Indication: HIV INFECTION
     Dosage: 300MG TWICE PER DAY
     Route: 048
     Dates: start: 20040401, end: 20050315
  6. ZERIT [Suspect]
     Indication: HIV INFECTION
     Route: 048
     Dates: start: 19990318, end: 20000221
  7. VIRACEPT [Suspect]
     Indication: HIV INFECTION
     Route: 048
     Dates: start: 19990318, end: 20020423
  8. VIRACEPT [Suspect]
     Indication: HIV INFECTION
     Route: 048
     Dates: start: 20021208, end: 20051116
  9. LEXIVA [Concomitant]
     Indication: HIV INFECTION
     Dosage: 700MG TWICE PER DAY
     Route: 048
     Dates: start: 20091021
  10. EPZICOM [Concomitant]
     Indication: HIV INFECTION
     Route: 048
     Dates: start: 20050316, end: 20090722
  11. EPZICOM [Concomitant]
     Indication: HIV INFECTION
     Route: 048
     Dates: start: 20091021
  12. REYATAZ [Concomitant]
     Indication: HIV INFECTION
     Route: 048
     Dates: start: 20051117, end: 20090722
  13. NORVIR [Concomitant]
     Indication: HIV INFECTION
     Route: 048
     Dates: start: 20051117, end: 20090722
  14. NORVIR [Concomitant]
     Indication: HIV INFECTION
     Route: 048
     Dates: start: 20091021
  15. ALDACTONE A [Concomitant]
     Indication: CARDIAC FAILURE
     Dosage: 25MG PER DAY
     Route: 048
     Dates: start: 20020405
  16. BLOPRESS [Concomitant]
     Indication: CARDIAC FAILURE
     Dosage: 2MG PER DAY
     Route: 048
     Dates: start: 20041111
  17. MYSLEE [Concomitant]
     Route: 048
     Dates: start: 20050420, end: 20090729
  18. PREDONINE [Concomitant]
     Indication: RASH
     Route: 048
     Dates: start: 20091029, end: 20091030
  19. PREDONINE [Concomitant]
     Indication: RASH
     Route: 048
     Dates: start: 20091031, end: 20091101
  20. PACETCOOL [Concomitant]
     Indication: PYELONEPHRITIS
     Dosage: 1G FOUR TIMES PER DAY
     Dates: start: 20090722, end: 20090723
  21. ROCEMERCK [Concomitant]
     Indication: PYELONEPHRITIS
     Dosage: 2G TWICE PER DAY
     Dates: start: 20090724, end: 20090730
  22. NORVIR [Concomitant]
     Indication: HIV INFECTION
     Route: 048
     Dates: start: 20110615
  23. EPADEL S [Concomitant]
     Indication: HYPERLIPIDAEMIA
     Dosage: 900MG TWICE PER DAY
     Route: 048
     Dates: start: 20120627

REACTIONS (9)
  - Congestive cardiomyopathy [Recovering/Resolving]
  - Mitochondrial toxicity [Unknown]
  - Neuropathy peripheral [Recovering/Resolving]
  - Dysgeusia [Recovering/Resolving]
  - Hyperlipidaemia [Recovering/Resolving]
  - Diarrhoea [Recovering/Resolving]
  - White blood cell count decreased [Recovered/Resolved]
  - Hyperlipidaemia [Recovered/Resolved]
  - Hepatic enzyme increased [Unknown]
